FAERS Safety Report 8856642 (Version 2)
Quarter: 2012Q4

REPORT INFORMATION
  Report Type: Spontaneous
  Country: None (occurrence: None)
  Receive Date: 20121019
  Receipt Date: 20121024
  Transmission Date: 20130627
  Serious: Yes (Hospitalization)
  Sender: FDA-Public Use
  Company Number: AUR-APL-2012-04445

PATIENT
  Age: 62 Year
  Sex: Male

DRUGS (1)
  1. METFORMIN [Suspect]
     Indication: TYPE 2 DIABETES MELLITUS

REACTIONS (7)
  - Dyspnoea [None]
  - Lactic acidosis [None]
  - Cardiogenic shock [None]
  - Acute myocardial infarction [None]
  - Continuous haemodiafiltration [None]
  - Renal impairment [None]
  - Drug level increased [None]
